FAERS Safety Report 5995547-0 (Version None)
Quarter: 2008Q4

REPORT INFORMATION
  Report Type: 
  Country: None (occurrence: None)
  Receive Date: 20081212
  Receipt Date: 20081201
  Transmission Date: 20090506
  Serious: Yes (Other)
  Sender: FDA-Public Use
  Company Number: US-ROCHE-596602

PATIENT
  Sex: Female
  Weight: 106.6 kg

DRUGS (2)
  1. CAPECITABINE [Suspect]
     Indication: BREAST CANCER
     Route: 065
  2. AREDIA [Concomitant]

REACTIONS (4)
  - DERMATITIS [None]
  - DRUG EFFECT DECREASED [None]
  - DRY SKIN [None]
  - METASTASES TO BONE [None]
